FAERS Safety Report 17523106 (Version 1)
Quarter: 2020Q1

REPORT INFORMATION
  Report Type: Spontaneous
  Country: US (occurrence: US)
  Receive Date: 20200311
  Receipt Date: 20200311
  Transmission Date: 20200409
  Serious: No
  Sender: FDA-Public Use
  Company Number: US-LUPIN PHARMACEUTICALS INC.-2020-00602

PATIENT
  Age: 8 Week
  Sex: Male

DRUGS (1)
  1. FAMOTIDINE FOR ORAL SUSPENSION [Suspect]
     Active Substance: FAMOTIDINE
     Indication: GASTROOESOPHAGEAL REFLUX DISEASE
     Dosage: 0.3 MILLILITER, BID
     Route: 048
     Dates: start: 20191221, end: 20200111

REACTIONS (2)
  - Therapeutic product effect incomplete [Unknown]
  - Expired product administered [Unknown]
